FAERS Safety Report 7687292-0 (Version None)
Quarter: 2011Q3

REPORT INFORMATION
  Report Type: 
  Country: None (occurrence: None)
  Receive Date: 20110816
  Receipt Date: 20110803
  Transmission Date: 20111222
  Serious: Yes (Other)
  Sender: FDA-Public Use
  Company Number: JP-MYLANLABS-2011S1016149

PATIENT
  Age: 21 Year
  Sex: Male

DRUGS (3)
  1. CARBOPLATIN [Suspect]
     Indication: GERM CELL CANCER
     Dosage: 300 MG/M2 ON DAYS -6, -5, -4 AND -3, RECEIVED 2 CYCLES
     Route: 042
  2. IFOSFAMIDE [Suspect]
     Indication: GERM CELL CANCER
     Dosage: 2.0 G/M2 ON DAYS -6, -5, -4 AND -3, RECEIVED 2 CYCLES
     Route: 042
  3. ETOPOSIDE [Suspect]
     Indication: GERM CELL CANCER
     Dosage: 400 MG/M2 ON DAYS -6, -5, -4, -3 OF EACH CYCLE, RECEIVED 2 CYCLES
     Route: 042

REACTIONS (6)
  - LEUKOPENIA [None]
  - RENAL IMPAIRMENT [None]
  - DECREASED APPETITE [None]
  - NAUSEA [None]
  - THROMBOCYTOPENIA [None]
  - PYREXIA [None]
